FAERS Safety Report 14024363 (Version 1)
Quarter: 2017Q3

REPORT INFORMATION
  Report Type: Spontaneous
  Country: US (occurrence: US)
  Receive Date: 20170928
  Receipt Date: 20170928
  Transmission Date: 20171128
  Serious: No
  Sender: FDA-Public Use
  Company Number: US-SA-2017SA003649

PATIENT
  Age: 60 Year
  Sex: Female
  Weight: 83.46 kg

DRUGS (1)
  1. AUBAGIO [Suspect]
     Active Substance: TERIFLUNOMIDE
     Indication: MULTIPLE SCLEROSIS
     Route: 048
     Dates: start: 20150114

REACTIONS (3)
  - Asthenia [Unknown]
  - Influenza [Unknown]
  - Product use issue [Unknown]

NARRATIVE: CASE EVENT DATE: 20150114
